FAERS Safety Report 19027257 (Version 8)
Quarter: 2022Q3

REPORT INFORMATION
  Report Type: Spontaneous
  Country: JP (occurrence: JP)
  Receive Date: 20210318
  Receipt Date: 20220705
  Transmission Date: 20221027
  Serious: Yes (Hospitalization, Other)
  Sender: FDA-Public Use
  Company Number: JP-DSJP-DSJ-2020-127578

PATIENT
  Age: 62 Year
  Sex: Female
  Weight: 76 kg

DRUGS (6)
  1. ENHERTU [Suspect]
     Active Substance: FAM-TRASTUZUMAB DERUXTECAN-NXKI
     Indication: HER2 positive breast cancer
     Dosage: 5.4 MG/KG, ONCE EVERY 3 WK
     Route: 041
     Dates: start: 20200902, end: 20200902
  2. ENHERTU [Suspect]
     Active Substance: FAM-TRASTUZUMAB DERUXTECAN-NXKI
     Dosage: 5.4 MG/KG, ONCE EVERY 3 WK
     Route: 041
     Dates: start: 20200923, end: 20200923
  3. ENHERTU [Suspect]
     Active Substance: FAM-TRASTUZUMAB DERUXTECAN-NXKI
     Dosage: 5.4 MG/KG, ONCE EVERY 3 WK
     Route: 041
     Dates: start: 20201014, end: 20201014
  4. ENHERTU [Suspect]
     Active Substance: FAM-TRASTUZUMAB DERUXTECAN-NXKI
     Dosage: 5.4 MG/KG, ONCE EVERY 3 WK
     Route: 041
     Dates: start: 20201104, end: 20201104
  5. ENHERTU [Suspect]
     Active Substance: FAM-TRASTUZUMAB DERUXTECAN-NXKI
     Dosage: 5.4 MG/KG, ONCE EVERY 3 WK
     Route: 041
     Dates: start: 20201202, end: 20201202
  6. ENHERTU [Suspect]
     Active Substance: FAM-TRASTUZUMAB DERUXTECAN-NXKI
     Dosage: 400 MG, ONCE EVERY 3 WK
     Route: 041
     Dates: start: 2022

REACTIONS (6)
  - Cerebral haemorrhage [Recovering/Resolving]
  - Alopecia [Unknown]
  - Nausea [Unknown]
  - Constipation [Recovering/Resolving]
  - Diarrhoea [Unknown]
  - Disease progression [Unknown]

NARRATIVE: CASE EVENT DATE: 20210111
